FAERS Safety Report 6318543-2 (Version None)
Quarter: 2009Q3

REPORT INFORMATION
  Report Type: 
  Country: None (occurrence: None)
  Receive Date: 20090821
  Receipt Date: 20090811
  Transmission Date: 20100115
  Serious: Yes (Hospitalization)
  Sender: FDA-Public Use
  Company Number: PHHY2009SA33863

PATIENT
  Sex: Male
  Weight: 62 kg

DRUGS (4)
  1. EXFORGE [Suspect]
     Indication: ACCELERATED HYPERTENSION
     Dosage: UNK
     Route: 048
     Dates: start: 20090707, end: 20090721
  2. PLAVIX [Concomitant]
     Dosage: 75 UNK, UNK
  3. NOURIC [Concomitant]
  4. LIPITOR [Concomitant]
     Dosage: 40 MG

REACTIONS (6)
  - DEPRESSED LEVEL OF CONSCIOUSNESS [None]
  - DISORIENTATION [None]
  - DYSARTHRIA [None]
  - RENAL ARTERY STENOSIS [None]
  - RENAL FAILURE ACUTE [None]
  - SOMNOLENCE [None]
